FAERS Safety Report 5272315-9 (Version None)
Quarter: 2007Q1

REPORT INFORMATION
  Report Type: 
  Country: None (occurrence: None)
  Receive Date: 20070320
  Receipt Date: 20070320
  Transmission Date: 20070707
  Serious: Yes (Other)
  Sender: FDA-Public Use
  Company Number: None

PATIENT
  Sex: Male
  Weight: 63.5036 kg

DRUGS (1)
  1. ICY HOT PATCHES 5% ICY HOT [Suspect]
     Indication: MYALGIA
     Dosage: 5% EVERY 4 HOURS TOP
     Route: 061
     Dates: start: 20070315, end: 20070315

REACTIONS (2)
  - HYPOTENSION [None]
  - OVERDOSE [None]
